FAERS Safety Report 5596254-9 (Version None)
Quarter: 2007Q4

REPORT INFORMATION
  Report Type: 
  Country: None (occurrence: None)
  Receive Date: 20071218
  Receipt Date: 20070207
  Transmission Date: 20080405
  Serious: Yes (Hospitalization, Other)
  Sender: FDA-Public Use
  Company Number: 2006074148

PATIENT
  Age: 57 Year
  Sex: Male
  Weight: 97.5 kg

DRUGS (1)
  1. BEXTRA [Suspect]
     Indication: ARTHRITIS
     Dosage: 20 MG (20 MG,1 IN 1 D)
     Dates: start: 20030909

REACTIONS (1)
  - MYOCARDIAL INFARCTION [None]
